FAERS Safety Report 18043235 (Version 4)
Quarter: 2020Q3

REPORT INFORMATION
  Report Type: Spontaneous
  Country: US (occurrence: US)
  Receive Date: 20200720
  Receipt Date: 20200923
  Transmission Date: 20201103
  Serious: Yes (Other)
  Sender: FDA-Public Use
  Company Number: US-GLAXOSMITHKLINE-US2020AMR131303

PATIENT
  Sex: Female

DRUGS (2)
  1. ZEJULA [Suspect]
     Active Substance: NIRAPARIB
     Dosage: UNK 100MG FOR TWO WEEKS, THEN 100MG FOR ONE DAY, THEN 200MG FOR ONE DAY
     Route: 048
     Dates: start: 20200914
  2. ZEJULA [Suspect]
     Active Substance: NIRAPARIB
     Indication: OVARIAN CANCER
     Dosage: 300 MG, QD
     Route: 048
     Dates: start: 20200702, end: 20200731

REACTIONS (16)
  - Oropharyngeal pain [Unknown]
  - Contusion [Unknown]
  - Neuropathy peripheral [Unknown]
  - Chills [Unknown]
  - Faeces hard [Unknown]
  - Thrombosis [Unknown]
  - Constipation [Not Recovered/Not Resolved]
  - Dry mouth [Unknown]
  - Decreased appetite [Unknown]
  - Diarrhoea [Unknown]
  - Product use issue [Unknown]
  - Fatigue [Unknown]
  - Nausea [Unknown]
  - Peripheral swelling [Unknown]
  - Platelet count decreased [Unknown]
  - Therapy interrupted [Unknown]
